FAERS Safety Report 9690671 (Version 2)
Quarter: 2013Q4

REPORT INFORMATION
  Report Type: Spontaneous
  Country: US (occurrence: US)
  Receive Date: 20131115
  Receipt Date: 20131115
  Transmission Date: 20140711
  Serious: No
  Sender: FDA-Public Use
  Company Number: US-BAXTER-2013BAX042465

PATIENT
  Age: 77 Year
  Sex: Female

DRUGS (4)
  1. DIANEAL LOW CALCIUM [Suspect]
     Indication: RENAL FAILURE CHRONIC
     Route: 033
     Dates: start: 201212
  2. DIANEAL LOW CALCIUM [Suspect]
     Indication: RENAL FAILURE CHRONIC
     Route: 033
     Dates: start: 201212
  3. DIANEAL LOW CALCIUM (ULTRABAG) [Suspect]
     Indication: RENAL FAILURE CHRONIC
     Dosage: MID-DAY EXCHANGE
     Route: 033
     Dates: start: 201212
  4. PREDNISONE [Suspect]
     Indication: GOUT
     Dates: start: 201310, end: 201310

REACTIONS (2)
  - Gout [Recovering/Resolving]
  - Constipation [Recovering/Resolving]
